FAERS Safety Report 24436024 (Version 2)
Quarter: 2025Q2

REPORT INFORMATION
  Report Type: Spontaneous
  Country: US (occurrence: US)
  Receive Date: 20241015
  Receipt Date: 20250428
  Transmission Date: 20250716
  Serious: Yes (Other)
  Sender: SANOFI AVENTIS
  Company Number: US-SA-2024SA292656

PATIENT
  Sex: Female
  Weight: 49.09 kg

DRUGS (2)
  1. DUPIXENT [Suspect]
     Active Substance: DUPILUMAB
     Indication: Dermatitis atopic
     Dosage: 300 MG, QOW
     Route: 058
  2. DUPIXENT [Suspect]
     Active Substance: DUPILUMAB
     Indication: Essential hypertension

REACTIONS (6)
  - Kidney infection [Unknown]
  - Cystitis [Unknown]
  - Dry skin [Recovering/Resolving]
  - Weight decreased [Unknown]
  - Dysphagia [Unknown]
  - Product use in unapproved indication [Unknown]
